FAERS Safety Report 6872198-7 (Version None)
Quarter: 2010Q3

REPORT INFORMATION
  Report Type: 
  Country: None (occurrence: None)
  Receive Date: 20100723
  Receipt Date: 20100715
  Transmission Date: 20110219
  Serious: Yes (Hospitalization)
  Sender: FDA-Public Use
  Company Number: US-AMGEN-KDL408187

PATIENT
  Sex: Female
  Weight: 76.3 kg

DRUGS (10)
  1. PROCRIT [Suspect]
     Indication: RENAL FAILURE CHRONIC
     Dates: start: 20070516
  2. SERTRALINE HCL [Concomitant]
  3. ARICEPT [Concomitant]
  4. JANUVIA [Concomitant]
  5. GLIPIZIDE [Concomitant]
  6. SIMVASTATIN [Concomitant]
  7. ATENOLOL [Concomitant]
  8. NORVASC [Concomitant]
  9. HYDRALAZINE HCL [Concomitant]
  10. XANAX [Concomitant]

REACTIONS (2)
  - HAEMATOCRIT DECREASED [None]
  - RENAL FAILURE [None]
